FAERS Safety Report 7865876-4 (Version None)
Quarter: 2011Q4

REPORT INFORMATION
  Report Type: 
  Country: None (occurrence: None)
  Receive Date: 20111028
  Receipt Date: 20110302
  Transmission Date: 20120403
  Serious: No
  Sender: FDA-Public Use
  Company Number: US-GLAXOSMITHKLINE-A0918032A

PATIENT
  Age: 64 Year
  Sex: Female

DRUGS (12)
  1. WELLBUTRIN XL [Concomitant]
  2. SINGULAIR [Concomitant]
  3. NEXIUM [Concomitant]
  4. LITHIUM CITRATE [Concomitant]
  5. FLUTICASONE PROPIONATE [Concomitant]
  6. LAMICTAL [Concomitant]
  7. LISINOPRIL AND HYDROCHLOROTHIAZIDE [Concomitant]
  8. ALBUTEROL [Concomitant]
  9. ADVAIR DISKUS 100/50 [Suspect]
     Indication: ASTHMA
     Dosage: 1PUFF TWICE PER DAY
     Route: 055
     Dates: start: 20080101
  10. ASTELIN [Concomitant]
  11. LIPITOR [Concomitant]
  12. VYVANSE [Concomitant]

REACTIONS (3)
  - DYSPHONIA [None]
  - DRY MOUTH [None]
  - PRODUCT QUALITY ISSUE [None]
